FAERS Safety Report 5261479-9 (Version None)
Quarter: 2007Q1

REPORT INFORMATION
  Report Type: 
  Country: None (occurrence: None)
  Receive Date: 20070307
  Receipt Date: 20070220
  Transmission Date: 20070707
  Serious: Yes (Disabling)
  Sender: FDA-Public Use
  Company Number: PHHO2006IN20127

PATIENT
  Age: 62 Year
  Sex: Female
  Weight: 76.0229 kg

DRUGS (3)
  1. VISUDYNE [Suspect]
     Indication: CHOROIDAL NEOVASCULARISATION
     Dates: start: 20060623, end: 20060623
  2. LUCENTIS [Suspect]
     Dates: start: 20060601, end: 20060601
  3. AVASTIN [Concomitant]

REACTIONS (5)
  - CONJUNCTIVAL DISORDER [None]
  - IATROGENIC INJURY [None]
  - INJURY [None]
  - PROCEDURAL COMPLICATION [None]
  - RETINAL HAEMORRHAGE [None]
